FAERS Safety Report 16504968 (Version 1)
Quarter: 2019Q3

REPORT INFORMATION
  Report Type: Spontaneous
  Country: US (occurrence: US)
  Receive Date: 20190701
  Receipt Date: 20190701
  Transmission Date: 20191004
  Serious: No
  Sender: FDA-Public Use
  Company Number: US-PFM-2018-05544

PATIENT
  Age: 11 Month
  Sex: Male
  Weight: 10.43 kg

DRUGS (3)
  1. HEMANGEOL [Suspect]
     Active Substance: PROPRANOLOL HYDROCHLORIDE
     Dosage: 3.8 ML, BID (2/DAY)
     Route: 048
     Dates: start: 20180409
  2. HEMANGEOL [Suspect]
     Active Substance: PROPRANOLOL HYDROCHLORIDE
     Dosage: 2.8 ML, BID (2/DAY)
     Route: 048
     Dates: start: 20180405
  3. HEMANGEOL [Suspect]
     Active Substance: PROPRANOLOL HYDROCHLORIDE
     Indication: INFANTILE HAEMANGIOMA
     Dosage: UNK, UNKNOWN
     Route: 048
     Dates: start: 20180326

REACTIONS (3)
  - Product administered to patient of inappropriate age [Unknown]
  - Off label use [Unknown]
  - Extra dose administered [Unknown]

NARRATIVE: CASE EVENT DATE: 20180517
